FAERS Safety Report 23168288 (Version 1)
Quarter: 2023Q4

REPORT INFORMATION
  Report Type: Spontaneous
  Country: BE (occurrence: BE)
  Receive Date: 20231109
  Receipt Date: 20231109
  Transmission Date: 20240109
  Serious: Yes (Hospitalization)
  Sender: FDA-Public Use
  Company Number: BE-STRIDES ARCOLAB LIMITED-2023SP016689

PATIENT
  Age: 55 Year
  Sex: Male

DRUGS (2)
  1. IMIPRAMINE HYDROCHLORIDE [Suspect]
     Active Substance: IMIPRAMINE HYDROCHLORIDE
     Indication: Product used for unknown indication
     Dosage: UNK
     Route: 065
  2. DESIPRAMINE [Suspect]
     Active Substance: DESIPRAMINE
     Indication: Product used for unknown indication
     Dosage: UNK
     Route: 065

REACTIONS (14)
  - Acute respiratory distress syndrome [Recovered/Resolved]
  - Acute kidney injury [Unknown]
  - Loss of consciousness [Recovered/Resolved]
  - Ischaemia [Unknown]
  - Oliguria [Unknown]
  - Torsade de pointes [Unknown]
  - Rhabdomyolysis [Recovered/Resolved]
  - Pulmonary oedema [Unknown]
  - Ventricular fibrillation [Recovered/Resolved]
  - Coma [Recovered/Resolved]
  - Ventricular tachycardia [Recovered/Resolved]
  - Cardiogenic shock [Recovered/Resolved]
  - Poisoning deliberate [Unknown]
  - Overdose [Unknown]
